FAERS Safety Report 21476426 (Version 2)
Quarter: 2022Q4

REPORT INFORMATION
  Report Type: Report from Study
  Country: GB (occurrence: GB)
  Receive Date: 20221019
  Receipt Date: 20221025
  Transmission Date: 20230113
  Serious: No
  Sender: FDA-Public Use
  Company Number: GB-PFIZER INC-202201198061

PATIENT

DRUGS (1)
  1. SULFASALAZINE [Suspect]
     Active Substance: SULFASALAZINE
     Indication: Colitis ulcerative
     Dosage: MEAN DAILY DOSE 2.5 G, RANGE 0.5-4.0 G

REACTIONS (1)
  - Red blood cell abnormality [Unknown]
